FAERS Safety Report 25899477 (Version 2)
Quarter: 2025Q4

REPORT INFORMATION
  Report Type: Spontaneous
  Country: JP (occurrence: JP)
  Receive Date: 20251009
  Receipt Date: 20251020
  Transmission Date: 20260118
  Serious: Yes (Death, Other)
  Sender: GILEAD
  Company Number: JP-GILEAD-2025-0731835

PATIENT
  Age: 9 Decade
  Sex: Male

DRUGS (2)
  1. VEMLIDY [Suspect]
     Active Substance: TENOFOVIR ALAFENAMIDE FUMARATE
     Indication: Hepatitis B reactivation
     Dosage: 25 MG/ DAY
     Route: 065
     Dates: start: 2019
  2. ENTECAVIR [Concomitant]
     Active Substance: ENTECAVIR
     Dosage: 0.5 MG/ DAY
     Dates: start: 2020

REACTIONS (1)
  - Neoplasm malignant [Fatal]
